FAERS Safety Report 22333059 (Version 5)
Quarter: 2024Q3

REPORT INFORMATION
  Report Type: Report from Study
  Country: US (occurrence: US)
  Receive Date: 20230517
  Receipt Date: 20240722
  Transmission Date: 20241017
  Serious: No
  Sender: NOVARTIS
  Company Number: US-002147023-NVSC2023US111581

PATIENT
  Sex: Male

DRUGS (1)
  1. ENTRESTO [Suspect]
     Active Substance: SACUBITRIL\VALSARTAN
     Indication: Product used for unknown indication
     Dosage: UNK, BID
     Route: 048
     Dates: start: 2023

REACTIONS (7)
  - Sleep disorder [Unknown]
  - Hypoaesthesia [Unknown]
  - Stress [Unknown]
  - Fluid retention [Unknown]
  - Heart rate increased [Unknown]
  - Joint swelling [Unknown]
  - Illness [Unknown]
